APPROVED DRUG PRODUCT: CLOBETASOL PROPIONATE
Active Ingredient: CLOBETASOL PROPIONATE
Strength: 0.05%
Dosage Form/Route: AEROSOL, FOAM;TOPICAL
Application: A201402 | Product #001 | TE Code: AB2
Applicant: PADAGIS ISRAEL PHARMACEUTICALS LTD
Approved: Aug 14, 2012 | RLD: No | RS: Yes | Type: RX